FAERS Safety Report 21542385 (Version 17)
Quarter: 2023Q1

REPORT INFORMATION
  Report Type: Report from Study
  Country: IT (occurrence: None)
  Receive Date: 20221102
  Receipt Date: 20230215
  Transmission Date: 20230417
  Serious: Yes (Hospitalization)
  Sender: FDA-Public Use
  Company Number: IT-Eisai Medical Research-EC-2022-126962

PATIENT
  Age: 76 Year
  Sex: Male
  Weight: 82 kg

DRUGS (12)
  1. LENVATINIB [Suspect]
     Active Substance: LENVATINIB
     Indication: Hepatocellular carcinoma
     Dosage: STARTING DOSE AT 12 MG, FLUCTUATED DOSAGE
     Route: 048
     Dates: start: 20220303, end: 20221024
  2. PEMBROLIZUMAB [Suspect]
     Active Substance: PEMBROLIZUMAB
     Indication: Hepatocellular carcinoma
     Dosage: MK-1308 25 MG (+) MK-3475 400 MG
     Route: 041
     Dates: start: 20220303, end: 20220930
  3. QUAVONLIMAB [Suspect]
     Active Substance: QUAVONLIMAB
     Dosage: MK-1308 25 MG (+) MK-3475 400 MG
     Route: 041
     Dates: start: 20230113
  4. INSULIN NOS [Concomitant]
     Active Substance: INSULIN NOS
     Route: 030
     Dates: start: 2016
  5. INSULIN DEGLUDEC [Concomitant]
     Active Substance: INSULIN DEGLUDEC
     Route: 030
     Dates: start: 2016
  6. ENTECAVIR [Concomitant]
     Active Substance: ENTECAVIR
     Dates: start: 2016
  7. CANRENONE [Concomitant]
     Active Substance: CANRENONE
     Dates: start: 2016, end: 20230114
  8. TAMSULOSIN HYDROCHLORIDE [Concomitant]
     Active Substance: TAMSULOSIN HYDROCHLORIDE
     Dates: start: 2021
  9. NADROPARIN [Concomitant]
     Active Substance: NADROPARIN
     Route: 030
     Dates: start: 20220325
  10. CANRENOATE POTASSIUM [Concomitant]
     Active Substance: CANRENOATE POTASSIUM
     Dates: start: 20220325
  11. CETIRIZINE [Concomitant]
     Active Substance: CETIRIZINE HYDROCHLORIDE
     Dates: start: 20220407
  12. BISOPROLOL [Concomitant]
     Active Substance: BISOPROLOL
     Dates: start: 20220427

REACTIONS (1)
  - Pulmonary embolism [Recovered/Resolved]

NARRATIVE: CASE EVENT DATE: 20221026
